FAERS Safety Report 9215056 (Version 1)
Quarter: 2013Q2

REPORT INFORMATION
  Report Type: Spontaneous
  Country: US (occurrence: US)
  Receive Date: 20130405
  Receipt Date: 20130405
  Transmission Date: 20140414
  Serious: Yes (Other)
  Sender: FDA-Public Use
  Company Number: US-BAYER-2013-041408

PATIENT
  Age: 25 Year
  Sex: Female

DRUGS (2)
  1. YAZ [Suspect]
     Dosage: UNK
     Dates: start: 201110, end: 20120423
  2. OCELLA [Suspect]
     Dosage: UNK
     Dates: start: 201110, end: 20120423

REACTIONS (2)
  - Pulmonary embolism [None]
  - Injury [None]
